FAERS Safety Report 23262480 (Version 5)
Quarter: 2024Q2

REPORT INFORMATION
  Report Type: Spontaneous
  Country: US (occurrence: US)
  Receive Date: 20231205
  Receipt Date: 20240402
  Transmission Date: 20240716
  Serious: No
  Sender: FDA-Public Use
  Company Number: US-PFIZER INC-PV202300195985

PATIENT
  Age: 71 Year
  Sex: Female

DRUGS (5)
  1. BRAFTOVI [Suspect]
     Active Substance: ENCORAFENIB
     Dosage: TAKE FOUR CAPSULES
     Route: 048
  2. BRAFTOVI [Suspect]
     Active Substance: ENCORAFENIB
     Dosage: (TAKE 6 CAPS (450MG TOTAL) BY MOUTH DAILY)
     Route: 048
  3. BRAFTOVI [Suspect]
     Active Substance: ENCORAFENIB
     Dosage: 4 CAPSULES, DAILY
     Route: 048
  4. BRAFTOVI [Suspect]
     Active Substance: ENCORAFENIB
     Dosage: TAKE THREE CAPSULES (225 MG TOTAL) BY MOUTH DAILY
     Route: 048
  5. MEKTOVI [Suspect]
     Active Substance: BINIMETINIB
     Dosage: 45 MG, 2X/DAY
     Route: 048

REACTIONS (1)
  - Liver function test increased [Unknown]
